FAERS Safety Report 9476148 (Version 1)
Quarter: 2013Q3

REPORT INFORMATION
  Report Type: Spontaneous
  Country: US (occurrence: None)
  Receive Date: 20130823
  Receipt Date: 20130823
  Transmission Date: 20140515
  Serious: No
  Sender: FDA-Public Use
  Company Number: None

PATIENT
  Age: 53 Year
  Sex: Female

DRUGS (2)
  1. IMOVAX [Suspect]
     Route: 030
     Dates: start: 20120810
  2. IMOGAM RABIES-HT [Suspect]
     Route: 030
     Dates: start: 20120810

REACTIONS (4)
  - Anxiety [None]
  - Tachycardia [None]
  - Flushing [None]
  - Palpitations [None]
